FAERS Safety Report 5801884-2 (Version None)
Quarter: 2008Q3

REPORT INFORMATION
  Report Type: 
  Country: None (occurrence: None)
  Receive Date: 20080707
  Receipt Date: 20080630
  Transmission Date: 20090109
  Serious: Yes (Life-Threatening, Hospitalization)
  Sender: FDA-Public Use
  Company Number: FR-ASTRAZENECA-2008CG01014

PATIENT
  Age: 23117 Day
  Sex: Male

DRUGS (6)
  1. TENORMIN [Suspect]
     Dates: start: 20040101
  2. COLCHIMAX [Suspect]
     Route: 048
     Dates: start: 20080404, end: 20080407
  3. ERYTHROMYCIN [Suspect]
     Route: 048
     Dates: start: 20080404, end: 20080407
  4. RAMIPRIL [Concomitant]
     Dates: start: 20040101
  5. PLAVIX [Concomitant]
     Dates: start: 20040101
  6. FUROSEMIDE [Concomitant]
     Dates: start: 20040101

REACTIONS (6)
  - AGRANULOCYTOSIS [None]
  - ASTHENIA [None]
  - CYTOLYTIC HEPATITIS [None]
  - MYALGIA [None]
  - RASH [None]
  - RHABDOMYOLYSIS [None]
